FAERS Safety Report 8317525-9 (Version None)
Quarter: 2012Q2

REPORT INFORMATION
  Report Type: 
  Country: None (occurrence: None)
  Receive Date: 20120425
  Receipt Date: 20120411
  Transmission Date: 20120825
  Serious: Yes (Hospitalization)
  Sender: FDA-Public Use
  Company Number: 12TR004160

PATIENT
  Sex: Male
  Weight: 2.7 kg

DRUGS (2)
  1. VALPROIC ACID [Suspect]
     Dosage: 600 G, QD, TRANSPLACENTAL
     Route: 064
  2. PHENYTOIN [Concomitant]

REACTIONS (18)
  - BLOOD CREATINE PHOSPHOKINASE MB INCREASED [None]
  - BLOOD LACTATE DEHYDROGENASE INCREASED [None]
  - HYPOGLYCAEMIA [None]
  - USE OF ACCESSORY RESPIRATORY MUSCLES [None]
  - PLACENTA PRAEVIA [None]
  - PLATELET COUNT DECREASED [None]
  - PREMATURE BABY [None]
  - FOETAL EXPOSURE DURING PREGNANCY [None]
  - CAESAREAN SECTION [None]
  - FEELING JITTERY [None]
  - BRADYCARDIA [None]
  - CYANOSIS [None]
  - HYPOTONIA [None]
  - DRUG WITHDRAWAL SYNDROME [None]
  - ASPARTATE AMINOTRANSFERASE INCREASED [None]
  - TACHYPNOEA [None]
  - DYSPNOEA [None]
  - BLOOD CREATINE PHOSPHOKINASE INCREASED [None]
